FAERS Safety Report 15637391 (Version 1)
Quarter: 2018Q4

REPORT INFORMATION
  Report Type: Spontaneous
  Country: BE (occurrence: BE)
  Receive Date: 20181120
  Receipt Date: 20181120
  Transmission Date: 20190205
  Serious: Yes (Hospitalization, Other)
  Sender: FDA-Public Use
  Company Number: BE-HQ SPECIALTY-BE-2018INT000227

PATIENT

DRUGS (4)
  1. CISPLATIN. [Suspect]
     Active Substance: CISPLATIN
     Indication: MESOTHELIOMA
     Dosage: 100 MG, (50 MG/M2)
     Route: 033
  2. DOXORUBICIN [Suspect]
     Active Substance: DOXORUBICIN
     Indication: MESOTHELIOMA
     Dosage: 30 MG, (15 MG/M2),
     Route: 033
  3. IFOSFAMIDE. [Suspect]
     Active Substance: IFOSFAMIDE
     Indication: MESOTHELIOMA
     Dosage: 2600 MG, (1300 MG/M2)
     Route: 042
  4. MESNA. [Suspect]
     Active Substance: MESNA
     Indication: MESOTHELIOMA
     Dosage: 520 MG, (260 MG/M2)
     Route: 042

REACTIONS (1)
  - Encapsulating peritoneal sclerosis [Recovered/Resolved]
